FAERS Safety Report 8206856-9 (Version None)
Quarter: 2012Q1

REPORT INFORMATION
  Report Type: 
  Country: None (occurrence: None)
  Receive Date: 20120312
  Receipt Date: 20120229
  Transmission Date: 20120608
  Serious: Yes (Death)
  Sender: FDA-Public Use
  Company Number: UTC-014663

PATIENT
  Age: 59 Year
  Sex: Female
  Weight: 63.1 kg

DRUGS (5)
  1. REVATIO [Concomitant]
  2. TRACLEER [Concomitant]
  3. DIURETICS (DIURETICS) [Concomitant]
  4. COUMADIN [Concomitant]
  5. REMODULIN [Suspect]
     Indication: PULMONARY HYPERTENSION
     Dosage: 110.88 UG/KG (0.077 UG/KG, 1 IN 1 MIN), SUBCUTANEOUS
     Route: 058
     Dates: start: 20060627

REACTIONS (4)
  - RESPIRATORY FAILURE [None]
  - POST PROCEDURAL HAEMORRHAGE [None]
  - SEPSIS [None]
  - RENAL FAILURE [None]
